FAERS Safety Report 16737231 (Version 1)
Quarter: 2019Q3

REPORT INFORMATION
  Report Type: Spontaneous
  Country: DE (occurrence: DE)
  Receive Date: 20190823
  Receipt Date: 20190823
  Transmission Date: 20191005
  Serious: Yes (Other)
  Sender: FDA-Public Use
  Company Number: DE-PERRIGO-19DE009968

PATIENT
  Sex: Female

DRUGS (2)
  1. DULOXETINE. [Concomitant]
     Active Substance: DULOXETINE
     Indication: PERSISTENT DEPRESSIVE DISORDER
     Dosage: UNK (1ST-2ND TRIMESTER)
     Route: 065
  2. ACETAMINOPHEN. [Suspect]
     Active Substance: ACETAMINOPHEN
     Indication: PYREXIA
     Dosage: UNK
     Route: 048

REACTIONS (3)
  - Oligohydramnios [Recovered/Resolved]
  - Hypertension [Unknown]
  - Foetal growth restriction [Recovered/Resolved]
